FAERS Safety Report 7818063-X (Version None)
Quarter: 2011Q4

REPORT INFORMATION
  Report Type: 
  Country: None (occurrence: None)
  Receive Date: 20111017
  Receipt Date: 20111007
  Transmission Date: 20120403
  Serious: Yes (Other)
  Sender: FDA-Public Use
  Company Number: US-CELGENEUS-163-21880-11101041

PATIENT
  Sex: Female

DRUGS (1)
  1. REVLIMID [Suspect]
     Indication: MULTIPLE MYELOMA
     Dosage: 15 MILLIGRAM
     Route: 048
     Dates: start: 20110908, end: 20111006

REACTIONS (5)
  - UNRESPONSIVE TO STIMULI [None]
  - OEDEMA PERIPHERAL [None]
  - CONSTIPATION [None]
  - SWELLING FACE [None]
  - DIZZINESS [None]
